APPROVED DRUG PRODUCT: DICLOFENAC SODIUM
Active Ingredient: DICLOFENAC SODIUM
Strength: 75MG
Dosage Form/Route: TABLET, DELAYED RELEASE;ORAL
Application: A074390 | Product #001
Applicant: TEVA PHARMACEUTICALS USA INC
Approved: Aug 15, 1996 | RLD: No | RS: No | Type: DISCN